FAERS Safety Report 8973192 (Version 3)
Quarter: 2013Q1

REPORT INFORMATION
  Report Type: Spontaneous
  Country: GB (occurrence: GB)
  Receive Date: 20121218
  Receipt Date: 20130225
  Transmission Date: 20140127
  Serious: Yes (Death, Other)
  Sender: FDA-Public Use
  Company Number: GB-AMGEN-GBRSP2012080164

PATIENT
  Age: 51 Year
  Sex: Female
  Weight: 64 kg

DRUGS (7)
  1. XGEVA [Suspect]
     Indication: BREAST CANCER METASTATIC
     Dosage: 120 MG, Q4WK
     Route: 058
     Dates: start: 20120613
  2. XGEVA [Suspect]
     Indication: METASTASES TO BONE
  3. OXYCONTIN [Concomitant]
     Dosage: 10 G, BID
  4. FASLODEX                           /01285001/ [Concomitant]
     Dosage: UNK
     Route: 058
     Dates: start: 201203
  5. CELEBREX [Concomitant]
     Dosage: UNK
  6. FRAGMIN [Concomitant]
     Dosage: 12500 UNK, UNK
  7. METFORMIN [Concomitant]

REACTIONS (7)
  - Bone marrow failure [Fatal]
  - Metastases to bone marrow [Fatal]
  - Influenza like illness [Recovered/Resolved]
  - Acute phase reaction [Unknown]
  - Bedridden [Recovered/Resolved]
  - Pain [Recovered/Resolved]
  - Headache [Recovered/Resolved]
